FAERS Safety Report 7004988-4 (Version None)
Quarter: 2010Q3

REPORT INFORMATION
  Report Type: 
  Country: None (occurrence: None)
  Receive Date: 20100920
  Receipt Date: 20100920
  Transmission Date: 20110219
  Serious: Yes (Life-Threatening)
  Sender: FDA-Public Use
  Company Number: None

PATIENT
  Age: 51 Year
  Sex: Female
  Weight: 79.8331 kg

DRUGS (1)
  1. LOSARTAN POTASSIUM [Suspect]
     Indication: CARDIAC FAILURE
     Dosage: 25 MG 1 X DAILY
     Dates: start: 20100501, end: 20100715

REACTIONS (4)
  - DIZZINESS [None]
  - DYSPHONIA [None]
  - DYSPNOEA [None]
  - PAIN IN EXTREMITY [None]
